FAERS Safety Report 17622568 (Version 1)
Quarter: 2020Q2

REPORT INFORMATION
  Report Type: Spontaneous
  Country: US (occurrence: US)
  Receive Date: 20200403
  Receipt Date: 20200403
  Transmission Date: 20200713
  Serious: No
  Sender: FDA-Public Use
  Company Number: None

PATIENT
  Age: 74 Year
  Sex: Female
  Weight: 88 kg

DRUGS (14)
  1. VITAMIN B 12 500 MCG, ORAL [Concomitant]
  2. LOVASTATIN 40MG, ORAL [Concomitant]
  3. LISINOPRIL 10 MG, ORAL [Concomitant]
  4. MAGNESIUM OXIDE, 400MG, ORAL [Concomitant]
  5. FUROSEMIDE 40 MG, ORAL [Concomitant]
  6. IBRANCE 75MG, ORAL [Concomitant]
     Dates: start: 20180904, end: 20190607
  7. VERZENIO [Suspect]
     Active Substance: ABEMACICLIB
     Indication: BREAST CANCER
     Route: 048
     Dates: start: 20191105, end: 20200403
  8. GLIMEPERIDE 2MG, ORAL [Concomitant]
  9. CARVEDILOL 6.25MG, ORAL [Concomitant]
  10. ASPIRIN 81MG, ORAL [Concomitant]
  11. IBRANCE 100 MG, ORAL [Concomitant]
     Dates: start: 20180314, end: 20180904
  12. VERZENIO 100MG, ORAL [Concomitant]
     Dates: start: 20190604, end: 20190719
  13. VERZENIO 50MG, ORAL [Concomitant]
     Dates: start: 20190719, end: 20200403
  14. GABAPENTIN 300MG, ORAL [Concomitant]
     Active Substance: GABAPENTIN

REACTIONS (1)
  - Disease progression [None]

NARRATIVE: CASE EVENT DATE: 20200402
